FAERS Safety Report 12109182 (Version 3)
Quarter: 2016Q2

REPORT INFORMATION
  Report Type: Spontaneous
  Country: FR (occurrence: FR)
  Receive Date: 20160224
  Receipt Date: 20160407
  Transmission Date: 20160815
  Serious: Yes (Other)
  Sender: FDA-Public Use
  Company Number: FR-SA-2016SA032311

PATIENT
  Age: 46 Year
  Sex: Female

DRUGS (6)
  1. MYOZYME [Suspect]
     Active Substance: ALGLUCOSIDASE ALFA
     Indication: GLYCOGEN STORAGE DISEASE TYPE II
     Dosage: DOSE INCREASED DUE TO WEIGHT GAIN  AND THE NEXT INFUSION WAS CANCELLED DUE TO ALLERGIC REACTIONS
     Route: 041
     Dates: start: 20160204, end: 20160204
  2. POLARAMINE [Concomitant]
     Active Substance: DEXCHLORPHENIRAMINE MALEATE
  3. MYOZYME [Suspect]
     Active Substance: ALGLUCOSIDASE ALFA
     Indication: GLYCOGEN STORAGE DISEASE TYPE II
     Route: 041
  4. SUBUTEX [Concomitant]
     Active Substance: BUPRENORPHINE HYDROCHLORIDE
  5. LYSANXIA [Concomitant]
     Active Substance: PRAZEPAM
  6. THERALENE [Concomitant]
     Active Substance: TRIMEPRAZINE

REACTIONS (25)
  - Gait disturbance [Unknown]
  - Hypotonia [Unknown]
  - Blood creatine phosphokinase MB increased [Unknown]
  - Pain [Unknown]
  - Blood creatine phosphokinase increased [Unknown]
  - Muscular weakness [Unknown]
  - Lacrimation increased [Not Recovered/Not Resolved]
  - Skin warm [Not Recovered/Not Resolved]
  - Aspartate aminotransferase increased [Unknown]
  - Restrictive pulmonary disease [Unknown]
  - Swelling [Not Recovered/Not Resolved]
  - Balance disorder [Not Recovered/Not Resolved]
  - Pain in extremity [Not Recovered/Not Resolved]
  - Erythema [Not Recovered/Not Resolved]
  - C-reactive protein increased [Not Recovered/Not Resolved]
  - Gamma-glutamyltransferase increased [Unknown]
  - Dyspnoea [Unknown]
  - Hypersensitivity [Not Recovered/Not Resolved]
  - Dyspnoea [Not Recovered/Not Resolved]
  - Face oedema [Not Recovered/Not Resolved]
  - Oedema peripheral [Not Recovered/Not Resolved]
  - Weight increased [Unknown]
  - Alanine aminotransferase increased [Unknown]
  - Fatigue [Not Recovered/Not Resolved]
  - Neurosis [Not Recovered/Not Resolved]

NARRATIVE: CASE EVENT DATE: 2015
